FAERS Safety Report 25892393 (Version 1)
Quarter: 2025Q4

REPORT INFORMATION
  Report Type: Spontaneous
  Country: US (occurrence: US)
  Receive Date: 20251007
  Receipt Date: 20251007
  Transmission Date: 20260118
  Serious: Yes (Other)
  Sender: ROCHE
  Company Number: US-ROCHE-10000400255

PATIENT
  Age: 48 Year
  Sex: Female

DRUGS (8)
  1. VALIUM [Suspect]
     Active Substance: DIAZEPAM
     Indication: Anxiety
     Route: 065
     Dates: start: 20250919
  2. XOLAIR [Suspect]
     Active Substance: OMALIZUMAB
     Indication: Chronic spontaneous urticaria
     Route: 065
     Dates: start: 20250919
  3. NAPROXEN [Concomitant]
     Active Substance: NAPROXEN
  4. ROBAXIN [Concomitant]
     Active Substance: METHOCARBAMOL
     Dosage: 1 IN THE MORNING AND 1 IN THE EVENING
  5. ZYRTEC [Concomitant]
     Active Substance: CETIRIZINE HYDROCHLORIDE
     Dosage: TWICE A DAY
  6. ALUMINUM HYDROXIDE\MAGNESIUM CARBONATE [Concomitant]
     Active Substance: ALUMINUM HYDROXIDE\MAGNESIUM CARBONATE
     Dosage: 1 AT BEDTIME
  7. IBUPRO [IBUPROFEN] [Concomitant]
  8. PREDNISONE [Concomitant]
     Active Substance: PREDNISONE
     Dosage: LAST DOSE ON 29-SEP-2025

REACTIONS (6)
  - Anaphylactic reaction [Unknown]
  - Chest discomfort [Unknown]
  - Dyspnoea [Unknown]
  - Paraesthesia [Unknown]
  - Pain [Unknown]
  - Hypoaesthesia [Not Recovered/Not Resolved]

NARRATIVE: CASE EVENT DATE: 20250919
